FAERS Safety Report 21575030 (Version 2)
Quarter: 2022Q4

REPORT INFORMATION
  Report Type: Report from Study
  Country: BR (occurrence: BR)
  Receive Date: 20221110
  Receipt Date: 20221125
  Transmission Date: 20230112
  Serious: Yes (Other)
  Sender: FDA-Public Use
  Company Number: BR-JNJFOC-20221109016

PATIENT
  Age: 64 Year
  Sex: Male
  Weight: 74 kg

DRUGS (2)
  1. INFLIXIMAB [Suspect]
     Active Substance: INFLIXIMAB
     Indication: Ankylosing spondylitis
     Dosage: 4 AMPOLS
     Route: 041
     Dates: start: 20171127
  2. INFLIXIMAB [Suspect]
     Active Substance: INFLIXIMAB
     Indication: Fibromyalgia

REACTIONS (2)
  - Pneumonia [Unknown]
  - Dengue fever [Unknown]

NARRATIVE: CASE EVENT DATE: 20220901
